FAERS Safety Report 4352907-1 (Version None)
Quarter: 2004Q2

REPORT INFORMATION
  Report Type: 
  Country: None (occurrence: None)
  Receive Date: 20040430
  Receipt Date: 20040302
  Transmission Date: 20050107
  Serious: No
  Sender: FDA-Public Use
  Company Number: 205065

PATIENT
  Age: 11 Year
  Sex: Female
  Weight: 39.9 kg

DRUGS (7)
  1. XOLAIR [Suspect]
     Indication: ASTHMA
     Dosage: 375 MG, Q2W, SUBCUTANEOUS
     Route: 058
     Dates: start: 20031217
  2. PREDNISONE [Concomitant]
  3. ADVAIR DISKUS [Concomitant]
  4. FLONASE [Concomitant]
  5. PRILOSEC [Concomitant]
  6. ALLEGRA [Concomitant]
  7. ALLERGY SHOTS (ALLERGENIC EXTRACTS) [Concomitant]

REACTIONS (1)
  - MYALGIA [None]
